FAERS Safety Report 6882250-8 (Version None)
Quarter: 2010Q3

REPORT INFORMATION
  Report Type: 
  Country: None (occurrence: None)
  Receive Date: 20100729
  Receipt Date: 20100722
  Transmission Date: 20110219
  Serious: Yes (Hospitalization, Other)
  Sender: FDA-Public Use
  Company Number: US-ELI_LILLY_AND_COMPANY-US201004002023

PATIENT
  Sex: Female
  Weight: 56.689 kg

DRUGS (12)
  1. BYETTA [Suspect]
     Dosage: 5 UG, 2/D
     Route: 058
     Dates: start: 20050725
  2. AVANDIA [Concomitant]
  3. FORTEO [Concomitant]
     Route: 058
  4. NEXIUM [Concomitant]
     Dosage: 40 MG, DAILY (1/D)
     Route: 048
  5. METOPROLOL TARTRATE [Concomitant]
     Dosage: 50 MG, 2/D
     Route: 048
  6. LOVAZA [Concomitant]
     Route: 048
  7. CRESTOR [Concomitant]
     Dosage: 20 MG, EACH EVENING
     Route: 048
  8. COZAAR [Concomitant]
     Dosage: 50 MG, DAILY (1/D)
     Route: 048
  9. HYDROCHLOROTHIAZIDE [Concomitant]
     Dosage: 12.5 MG, DAILY (1/D)
     Route: 048
  10. AMITRIPTYLINE HYDROCHLORIDE [Concomitant]
     Dosage: 25 MG, EACH EVENING
     Route: 048
  11. VITAMIN D [Concomitant]
     Dosage: 50000 IU, UNK
     Route: 048
  12. MAG-OX [Concomitant]
     Dosage: 400 UNK, DAILY (1/D)
     Route: 048

REACTIONS (4)
  - BLOOD CHOLESTEROL INCREASED [None]
  - HYPERTRIGLYCERIDAEMIA [None]
  - PANCREATITIS [None]
  - WEIGHT DECREASED [None]
